FAERS Safety Report 12416030 (Version 5)
Quarter: 2016Q4

REPORT INFORMATION
  Report Type: Report from Study
  Country: CA (occurrence: CA)
  Receive Date: 20160530
  Receipt Date: 20161130
  Transmission Date: 20170207
  Serious: Yes (Other)
  Sender: FDA-Public Use
  Company Number: CA-PFIZER INC-2016277363

PATIENT
  Age: 70 Year
  Sex: Female

DRUGS (14)
  1. SALAZOPYRIN [Suspect]
     Active Substance: SULFASALAZINE
     Dosage: UNK
     Route: 065
  2. LEFLUNOMIDE. [Suspect]
     Active Substance: LEFLUNOMIDE
     Dosage: UNK
  3. VITAMIN B6 [Concomitant]
     Active Substance: PYRIDOXINE HYDROCHLORIDE
     Dosage: UNK
  4. PREDNISONE. [Concomitant]
     Active Substance: PREDNISONE
     Dosage: UNK
  5. CURCUMEN [Concomitant]
     Indication: ARTHRALGIA
     Dosage: UNK
  6. RIVOTRIL [Concomitant]
     Active Substance: CLONAZEPAM
     Dosage: UNK
  7. VITAMIN B12 [Concomitant]
     Active Substance: CYANOCOBALAMIN
     Dosage: 5000 MU, UNK
  8. ENBREL [Suspect]
     Active Substance: ETANERCEPT
     Indication: RHEUMATOID ARTHRITIS
     Dosage: 50 MG, UNK
     Route: 065
     Dates: start: 20141106, end: 20160202
  9. PLAQUENIL [Suspect]
     Active Substance: HYDROXYCHLOROQUINE SULFATE
     Dosage: UNK
  10. IRON [Concomitant]
     Active Substance: IRON
     Dosage: UNK
  11. BIOTIN [Concomitant]
     Active Substance: BIOTIN
     Dosage: UNK
  12. ZINC [Concomitant]
     Active Substance: ZINC\ZINC CHLORIDE
     Dosage: UNK
  13. MILK THISTLE [Concomitant]
     Active Substance: MILK THISTLE
     Dosage: UNK
  14. CURCUMIN [Concomitant]
     Active Substance: CURCUMIN
     Dosage: UNK

REACTIONS (16)
  - Gastrointestinal bacterial infection [Unknown]
  - Crystal urine present [Unknown]
  - Liver disorder [Unknown]
  - White blood cell count decreased [Unknown]
  - Candida infection [Unknown]
  - Arthritis infective [Unknown]
  - Blood uric acid increased [Unknown]
  - Vitamin B12 deficiency [Unknown]
  - Hepatotoxicity [Unknown]
  - Gastrointestinal candidiasis [Unknown]
  - Renal disorder [Not Recovered/Not Resolved]
  - Fungal skin infection [Unknown]
  - Retinal disorder [Unknown]
  - Toxicity to various agents [Unknown]
  - Blood uric acid decreased [Unknown]
  - Anaemia [Unknown]

NARRATIVE: CASE EVENT DATE: 201512
